FAERS Safety Report 11844491 (Version 1)
Quarter: 2015Q4

REPORT INFORMATION
  Report Type: Spontaneous
  Country: US (occurrence: None)
  Receive Date: 20151216
  Receipt Date: 20151216
  Transmission Date: 20160305
  Serious: Yes (Disabling)
  Sender: FDA-Public Use
  Company Number: None

PATIENT
  Age: 36 Year
  Sex: Male
  Weight: 120.2 kg

DRUGS (1)
  1. CIPRO [Suspect]
     Active Substance: CIPROFLOXACIN HYDROCHLORIDE
     Indication: DYSURIA
     Dosage: TAKEN BY MOUTH PILL
     Dates: start: 20151015, end: 20151029

REACTIONS (8)
  - Depression [None]
  - Agitation [None]
  - Headache [None]
  - Impaired work ability [None]
  - Activities of daily living impaired [None]
  - Suicidal ideation [None]
  - Arthralgia [None]
  - Musculoskeletal pain [None]

NARRATIVE: CASE EVENT DATE: 20151029
